FAERS Safety Report 12549534 (Version 1)
Quarter: 2016Q3

REPORT INFORMATION
  Report Type: Spontaneous
  Country: US (occurrence: US)
  Receive Date: 20160712
  Receipt Date: 20160712
  Transmission Date: 20161109
  Serious: No
  Sender: FDA-Public Use
  Company Number: US-ENDO PHARMACEUTICALS INC.-2015-002188

PATIENT
  Age: 68 Year
  Sex: Male
  Weight: 111.68 kg

DRUGS (12)
  1. COLACE [Concomitant]
     Active Substance: DOCUSATE SODIUM
     Indication: CONSTIPATION
  2. TAMSULOSIN [Concomitant]
     Active Substance: TAMSULOSIN
     Indication: PROSTATIC DISORDER
  3. LISINOPRIL TABLETS 20MG [Concomitant]
     Active Substance: LISINOPRIL
     Indication: HYPERTENSION
  4. GABAPENTIN. [Concomitant]
     Active Substance: GABAPENTIN
     Indication: NEURALGIA
  5. ALLOPURINOL TABLETS 100MG [Concomitant]
     Active Substance: ALLOPURINOL
     Indication: GOUT
  6. AMLODIPINE BESYLATE TABLETS 10MG [Concomitant]
     Active Substance: AMLODIPINE BESYLATE
     Indication: HYPERTENSION
  7. HYDROCHLOROTHIAZIDE CAPSULES 12.5MG [Concomitant]
     Active Substance: HYDROCHLOROTHIAZIDE
     Indication: HYPERTENSION
  8. ATENOLOL TABLETS 100 MG [Concomitant]
     Indication: HYPERTENSION
  9. TESTOSTERONE INJECTION [Concomitant]
     Indication: BLOOD TESTOSTERONE DECREASED
  10. FINASTERIDE. [Concomitant]
     Active Substance: FINASTERIDE
     Indication: PROSTATIC DISORDER
  11. EDEX [Suspect]
     Active Substance: ALPROSTADIL
     Indication: ERECTILE DYSFUNCTION
     Route: 017
     Dates: start: 20150707
  12. INDOMETHACIN CAPSULES 50MG [Concomitant]
     Active Substance: INDOMETHACIN
     Indication: GOUT

REACTIONS (1)
  - Drug ineffective [Unknown]

NARRATIVE: CASE EVENT DATE: 20150707
